FAERS Safety Report 9291055 (Version 1)
Quarter: 2013Q2

REPORT INFORMATION
  Report Type: Spontaneous
  Country: US (occurrence: US)
  Receive Date: 20130515
  Receipt Date: 20130515
  Transmission Date: 20140414
  Serious: Yes (Other)
  Sender: FDA-Public Use
  Company Number: US-ASTRAZENECA-2013SE32424

PATIENT
  Age: 11 Year
  Sex: Female
  Weight: 77.1 kg

DRUGS (6)
  1. SEROQUEL [Suspect]
     Indication: ABNORMAL BEHAVIOUR
     Route: 048
     Dates: start: 201201, end: 201211
  2. SEROQUEL [Suspect]
     Indication: DEPRESSION
     Route: 048
     Dates: start: 201201, end: 201211
  3. SEROQUEL [Suspect]
     Indication: ABNORMAL BEHAVIOUR
     Route: 048
     Dates: start: 201211
  4. SEROQUEL [Suspect]
     Indication: DEPRESSION
     Route: 048
     Dates: start: 201211
  5. ADVAIR [Concomitant]
     Indication: ASTHMA
     Dosage: 100 50
  6. CELEXA [Concomitant]
     Indication: MOOD SWINGS
     Dates: start: 201211

REACTIONS (4)
  - Suicidal behaviour [Unknown]
  - Abnormal behaviour [Unknown]
  - Off label use [Unknown]
  - Drug ineffective for unapproved indication [Unknown]
